FAERS Safety Report 11393772 (Version 2)
Quarter: 2015Q4

REPORT INFORMATION
  Report Type: Spontaneous
  Country: JP (occurrence: JP)
  Receive Date: 20150819
  Receipt Date: 20151006
  Transmission Date: 20160304
  Serious: Yes (Life-Threatening, Other)
  Sender: FDA-Public Use
  Company Number: JP-009507513-1508JPN005221

PATIENT
  Age: 70 Year
  Sex: Male
  Weight: 70 kg

DRUGS (5)
  1. ESLAX INTRAVENOUS 50MG/5.0ML [Suspect]
     Active Substance: ROCURONIUM BROMIDE
     Indication: NEUROMUSCULAR BLOCKING THERAPY
     Dosage: 50 MG, ONCE
     Route: 042
     Dates: start: 20150507, end: 20150507
  2. NEO-SYNESIN [Concomitant]
     Active Substance: PHENYLEPHRINE HYDROCHLORIDE
     Indication: BLOOD PRESSURE MANAGEMENT
     Dosage: 0.3MG/H (DAILY DOSE UNKNOWN)
     Route: 042
     Dates: start: 20150507, end: 20150507
  3. ULTIVA [Suspect]
     Active Substance: REMIFENTANIL HYDROCHLORIDE
     Indication: GENERAL ANAESTHESIA
     Dosage: 0.1GAMMAS (0.1 MICROGRAM/KG/MIN)
     Route: 042
     Dates: start: 20150507, end: 20150507
  4. PROPOFOL. [Suspect]
     Active Substance: PROPOFOL
     Indication: ANAESTHESIA PROCEDURE
     Dosage: 80 MG, ONCE
     Route: 042
     Dates: start: 20150507, end: 20150507
  5. EPHEDRIN [Concomitant]
     Active Substance: EPHEDRINE HYDROCHLORIDE
     Indication: GENERAL ANAESTHESIA
     Dosage: 10MG/H (DAILY DOSE UNKNOWN)
     Route: 042
     Dates: start: 20150507, end: 20150507

REACTIONS (1)
  - Drug hypersensitivity [Recovered/Resolved]

NARRATIVE: CASE EVENT DATE: 20150507
